FAERS Safety Report 15615682 (Version 3)
Quarter: 2019Q2

REPORT INFORMATION
  Report Type: Spontaneous
  Country: US (occurrence: US)
  Receive Date: 20181114
  Receipt Date: 20190509
  Transmission Date: 20190711
  Serious: Yes (Hospitalization)
  Sender: FDA-Public Use
  Company Number: US-BRISTOL-MYERS SQUIBB COMPANY-BMS-2018-106793

PATIENT
  Age: 75 Year
  Sex: Female
  Weight: 51.2 kg

DRUGS (2)
  1. ORENCIA [Suspect]
     Active Substance: ABATACEPT
     Indication: PRODUCT USED FOR UNKNOWN INDICATION
     Dosage: 125 MG, QWK
     Route: 058
     Dates: start: 20181209, end: 20190106
  2. ORENCIA [Suspect]
     Active Substance: ABATACEPT
     Indication: PRODUCT USED FOR UNKNOWN INDICATION
     Dosage: 125 MILLIGRAM, QWK
     Route: 065

REACTIONS (6)
  - Adverse event [Unknown]
  - Skin fissures [Unknown]
  - Urinary tract infection [Unknown]
  - Rash [Unknown]
  - Eye infection [Unknown]
  - Pruritus [Unknown]

NARRATIVE: CASE EVENT DATE: 20190401
